FAERS Safety Report 8381620-9 (Version None)
Quarter: 2012Q2

REPORT INFORMATION
  Report Type: 
  Country: None (occurrence: None)
  Receive Date: 20120524
  Receipt Date: 20120510
  Transmission Date: 20120825
  Serious: No
  Sender: FDA-Public Use
  Company Number: US-ASTRAZENECA-2012SE30475

PATIENT
  Age: 57 Year
  Sex: Male

DRUGS (7)
  1. NEXIUM [Suspect]
     Route: 048
     Dates: start: 20110727
  2. AZOR [Concomitant]
  3. NIZORAL [Concomitant]
  4. SYMBICORT [Suspect]
     Dosage: 160-4.5 MCG 1 INHALATION TWO PUFFS TWICE DAILY
     Route: 055
     Dates: start: 20110727
  5. LYRICA [Concomitant]
  6. CIALIS [Concomitant]
  7. CELEBREX [Concomitant]

REACTIONS (2)
  - PAIN [None]
  - MUSCLE SPASMS [None]
